FAERS Safety Report 24594653 (Version 3)
Quarter: 2025Q1

REPORT INFORMATION
  Report Type: Spontaneous
  Country: CA (occurrence: CA)
  Receive Date: 20241108
  Receipt Date: 20250225
  Transmission Date: 20250408
  Serious: Yes (Other)
  Sender: PFIZER
  Company Number: CA-PFIZER INC-202400274360

PATIENT
  Age: 68 Year
  Sex: Male

DRUGS (2)
  1. RUXIENCE [Suspect]
     Active Substance: RITUXIMAB-PVVR
     Indication: Rheumatoid arthritis
     Route: 042
     Dates: start: 20240521, end: 20240604
  2. RUXIENCE [Suspect]
     Active Substance: RITUXIMAB-PVVR
     Route: 042
     Dates: start: 20241127, end: 20241209

REACTIONS (16)
  - Rheumatoid meningitis [Recovering/Resolving]
  - Cataract [Unknown]
  - Papilloedema [Recovered/Resolved]
  - Dizziness [Recovered/Resolved]
  - Lymphadenopathy [Unknown]
  - Blood pressure systolic increased [Unknown]
  - Chest pain [Not Recovered/Not Resolved]
  - Oedema [Unknown]
  - Platelet count decreased [Unknown]
  - Haemoglobin decreased [Recovering/Resolving]
  - Lymphocyte count decreased [Unknown]
  - Blood creatinine increased [Unknown]
  - Drug ineffective [Unknown]
  - White blood cell count increased [Unknown]
  - Hypotension [Unknown]
  - VEXAS syndrome [Unknown]

NARRATIVE: CASE EVENT DATE: 20240808
